FAERS Safety Report 5879851-2 (Version None)
Quarter: 2008Q3

REPORT INFORMATION
  Report Type: 
  Country: None (occurrence: None)
  Receive Date: 20080912
  Receipt Date: 20080901
  Transmission Date: 20090109
  Serious: Yes (Hospitalization)
  Sender: FDA-Public Use
  Company Number: PL-ROCHE-584362

PATIENT
  Sex: Female
  Weight: 65 kg

DRUGS (6)
  1. MIRCERA [Suspect]
     Indication: ANAEMIA
     Dosage: STRENGTH REPORTED AS: 200.
     Route: 058
     Dates: start: 20080721, end: 20080901
  2. ENARENAL [Concomitant]
     Indication: HYPERTENSION
     Dosage: DOSAGE REPORTED AS: 2X20 MG.
     Route: 048
  3. METOPROLOL TARTRATE [Concomitant]
     Indication: HYPERTENSION
     Dosage: OTHER INDICATION: FA. DOSAGE REPORTED AS: 2X50 MG.
     Route: 048
  4. NITRENDIPINE [Concomitant]
     Indication: HYPERTENSION
     Dosage: DRUG: NITRENDYPINA. DOSAGE REPORTED AS: 2X10 MG.
     Route: 048
  5. FUROSEMID [Concomitant]
     Indication: HYPERTENSION
     Dosage: DOSAGE REPORTED AS: 2X1 TABLET. OTHER INDICATION: HEART FAILURE.
     Route: 048
  6. EUPHYLLIN [Concomitant]
     Indication: CHRONIC OBSTRUCTIVE PULMONARY DISEASE
     Dosage: DRUG: EUPHILIN CR. DOSAGE REPORTED AS: 1X1.
     Route: 048

REACTIONS (4)
  - ASTHENIA [None]
  - COUGH [None]
  - PALPITATIONS [None]
  - SOMNOLENCE [None]
